FAERS Safety Report 12783202 (Version 1)
Quarter: 2016Q3

REPORT INFORMATION
  Report Type: Spontaneous
  Country: US (occurrence: US)
  Receive Date: 20160927
  Receipt Date: 20160927
  Transmission Date: 20161109
  Serious: Yes (Other)
  Sender: FDA-Public Use
  Company Number: US-BEH-2010025030

PATIENT
  Age: 61 Year
  Sex: Female
  Weight: 73.9 kg

DRUGS (22)
  1. HIZENTRA [Suspect]
     Active Substance: HUMAN IMMUNOGLOBULIN G
     Dosage: IN 4 SITES OVER 2 HOURS
     Route: 058
  2. QVAR [Concomitant]
     Active Substance: BECLOMETHASONE DIPROPIONATE
     Indication: ASTHMA
     Dosage: 2 PUFF TWICE DAILY
     Route: 055
     Dates: start: 20081231
  3. PLAVIX [Concomitant]
     Active Substance: CLOPIDOGREL BISULFATE
     Dosage: DAILY
  4. COENZYME Q10 [Concomitant]
     Active Substance: UBIDECARENONE
  5. HIZENTRA [Suspect]
     Active Substance: HUMAN IMMUNOGLOBULIN G
     Indication: HYPOGAMMAGLOBULINAEMIA
     Dosage: AT 4 SITES OVER 1.5 TO 3 HOURS
     Route: 058
     Dates: start: 20100530
  6. AMOXICILLIN. [Concomitant]
     Active Substance: AMOXICILLIN
     Dosage: 500 MG TWICE DAILY THE LAST 2 WEEKS OF EACH MONTH
     Route: 048
     Dates: start: 20081231
  7. FOSAMAX [Concomitant]
     Active Substance: ALENDRONATE SODIUM
  8. ALVESCO [Concomitant]
     Active Substance: CICLESONIDE
     Indication: ASTHMA
     Dosage: 1 PUFF PRN
     Route: 055
     Dates: start: 20081112
  9. ASPIRIN. [Concomitant]
     Active Substance: ASPIRIN
     Dosage: 81 MG DAILY
     Route: 048
     Dates: start: 20081231
  10. CALCIUM [Concomitant]
     Active Substance: CALCIUM
     Dosage: 500 MG DAILY
     Route: 048
     Dates: start: 20081231
  11. PREVACID [Concomitant]
     Active Substance: LANSOPRAZOLE
     Dosage: 30 MG AS NEEDED
     Route: 048
     Dates: start: 20081231
  12. ZOCOR [Concomitant]
     Active Substance: SIMVASTATIN
  13. ALBUTEROL. [Concomitant]
     Active Substance: ALBUTEROL
     Dosage: 2 PUFFS AS NEEDED
     Route: 055
     Dates: start: 20081112
  14. VITAMIN D [Concomitant]
     Active Substance: CHOLECALCIFEROL
     Dosage: 50,000 UNITS DAILY
     Dates: start: 20081112
  15. OMEGA-3 ACIDS [Concomitant]
     Active Substance: OMEGA-3 FATTY ACIDS
  16. FORADIL [Concomitant]
     Active Substance: FORMOTEROL FUMARATE
     Indication: ASTHMA
     Dosage: 1 CAPSULE DAILY
     Route: 055
     Dates: start: 20081231
  17. OCUVITE [Concomitant]
     Active Substance: VITAMINS
     Dosage: 1 TABLET DAILY
     Route: 048
     Dates: start: 20081231
  18. PANTOPRAZOLE [Concomitant]
     Active Substance: PANTOPRAZOLE SODIUM
  19. HIZENTRA [Suspect]
     Active Substance: HUMAN IMMUNOGLOBULIN G
     Indication: IMMUNODEFICIENCY COMMON VARIABLE
     Route: 058
  20. HIZENTRA [Suspect]
     Active Substance: HUMAN IMMUNOGLOBULIN G
     Indication: IMMUNODEFICIENCY
     Route: 058
  21. SYMBICORT [Concomitant]
     Active Substance: BUDESONIDE\FORMOTEROL FUMARATE DIHYDRATE
     Dosage: 160/4.5, TWO PUFFS TWICE DAILT
     Route: 055
  22. MAGNESIUM [Concomitant]
     Active Substance: MAGNESIUM
     Dosage: BID

REACTIONS (13)
  - Blindness transient [Recovered/Resolved]
  - Visual impairment [Recovered/Resolved]
  - Dyspnoea [Recovering/Resolving]
  - Infusion site pruritus [Recovering/Resolving]
  - Pruritus [Unknown]
  - Asthma [Recovering/Resolving]
  - Eye swelling [Recovered/Resolved]
  - Infusion site pain [Unknown]
  - Infusion site erythema [Unknown]
  - Visual impairment [Recovered/Resolved]
  - Infusion site swelling [Unknown]
  - Transient ischaemic attack [Recovered/Resolved]
  - Swollen tongue [Recovering/Resolving]

NARRATIVE: CASE EVENT DATE: 20100530
